FAERS Safety Report 13579898 (Version 3)
Quarter: 2017Q4

REPORT INFORMATION
  Report Type: Report from Study
  Country: None (occurrence: US)
  Receive Date: 20170525
  Receipt Date: 20171006
  Transmission Date: 20180320
  Serious: Yes (Hospitalization, Other)
  Sender: FDA-Public Use
  Company Number: US-ABBVIE-17K-163-1984749-00

PATIENT
  Age: 60 Year
  Sex: Female
  Weight: 64.4 kg

DRUGS (28)
  1. AZATHIOPRINE. [Concomitant]
     Active Substance: AZATHIOPRINE
     Indication: PRODUCT USED FOR UNKNOWN INDICATION
     Route: 048
     Dates: start: 20120612, end: 20121211
  2. DEXTRAN 40 W/HYPROMELLOSE [Concomitant]
     Indication: PRODUCT USED FOR UNKNOWN INDICATION
  3. PREDNISONE. [Concomitant]
     Active Substance: PREDNISONE
     Indication: PRODUCT USED FOR UNKNOWN INDICATION
  4. URSODIOL. [Concomitant]
     Active Substance: URSODIOL
     Indication: PRODUCT USED FOR UNKNOWN INDICATION
  5. VITAMIN D [Concomitant]
     Active Substance: CHOLECALCIFEROL
     Indication: PRODUCT USED FOR UNKNOWN INDICATION
  6. CEFTRIAXONE. [Concomitant]
     Active Substance: CEFTRIAXONE
     Indication: PRODUCT USED FOR UNKNOWN INDICATION
  7. LEVOTHYROXINE. [Concomitant]
     Active Substance: LEVOTHYROXINE
     Dates: start: 20120613, end: 20150326
  8. POTASSIUM CHLORIDE. [Concomitant]
     Active Substance: POTASSIUM CHLORIDE
     Indication: PRODUCT USED FOR UNKNOWN INDICATION
  9. HYDROCORTISONE. [Concomitant]
     Active Substance: HYDROCORTISONE
     Indication: PRODUCT USED FOR UNKNOWN INDICATION
  10. HUMIRA [Suspect]
     Active Substance: ADALIMUMAB
     Route: 058
     Dates: start: 20120517, end: 20170101
  11. LEVOTHYROXINE. [Concomitant]
     Active Substance: LEVOTHYROXINE
     Indication: PRODUCT USED FOR UNKNOWN INDICATION
  12. HYDROCHLOROTHIAZIDE. [Concomitant]
     Active Substance: HYDROCHLOROTHIAZIDE
     Indication: PRODUCT USED FOR UNKNOWN INDICATION
  13. PANTOPRAZOLE [Concomitant]
     Active Substance: PANTOPRAZOLE
     Indication: PRODUCT USED FOR UNKNOWN INDICATION
  14. METOPROLOL TARTRATE. [Concomitant]
     Active Substance: METOPROLOL TARTRATE
     Indication: PRODUCT USED FOR UNKNOWN INDICATION
  15. L-THYROXIN [Concomitant]
     Active Substance: LEVOTHYROXINE SODIUM
     Indication: PRODUCT USED FOR UNKNOWN INDICATION
     Dates: start: 20120613, end: 20150326
  16. POTASSIUM [Concomitant]
     Active Substance: POTASSIUM
     Indication: PRODUCT USED FOR UNKNOWN INDICATION
     Dates: start: 20130710, end: 20140225
  17. PREDNISONE. [Suspect]
     Active Substance: PREDNISONE
     Indication: PRODUCT USED FOR UNKNOWN INDICATION
     Route: 065
  18. URSODIOL. [Concomitant]
     Active Substance: URSODIOL
     Indication: PRODUCT USED FOR UNKNOWN INDICATION
  19. KLOR-CON [Concomitant]
     Active Substance: POTASSIUM CHLORIDE
     Indication: PRODUCT USED FOR UNKNOWN INDICATION
  20. CALCIUM [Concomitant]
     Active Substance: CALCIUM
     Indication: PRODUCT USED FOR UNKNOWN INDICATION
  21. HUMIRA [Suspect]
     Active Substance: ADALIMUMAB
     Indication: ARTHRITIS
     Route: 058
     Dates: start: 20110101
  22. HUMIRA [Suspect]
     Active Substance: ADALIMUMAB
     Route: 058
     Dates: start: 20170511
  23. IMURAN [Suspect]
     Active Substance: AZATHIOPRINE
     Indication: PRODUCT USED FOR UNKNOWN INDICATION
     Route: 048
  24. CLOPIDOGREL [Concomitant]
     Active Substance: CLOPIDOGREL BISULFATE
     Indication: PRODUCT USED FOR UNKNOWN INDICATION
  25. PNEUMO [Concomitant]
     Indication: PRODUCT USED FOR UNKNOWN INDICATION
  26. VITAMIN D3 [Concomitant]
     Active Substance: CHOLECALCIFEROL
     Indication: PRODUCT USED FOR UNKNOWN INDICATION
  27. ATORVASTATIN [Concomitant]
     Active Substance: ATORVASTATIN
     Indication: PRODUCT USED FOR UNKNOWN INDICATION
     Route: 048
  28. OSCAL [Concomitant]
     Active Substance: CALCIUM CARBONATE
     Indication: PRODUCT USED FOR UNKNOWN INDICATION

REACTIONS (38)
  - Carotid artery occlusion [Recovered/Resolved]
  - Hypokalaemia [Unknown]
  - Joint range of motion decreased [Unknown]
  - Pyrexia [Unknown]
  - Biliary cirrhosis primary [Unknown]
  - Cerebral infarction [Unknown]
  - Arteriovenous malformation [Unknown]
  - Increased tendency to bruise [Unknown]
  - Vitamin D deficiency [Unknown]
  - Troponin increased [Unknown]
  - Osteoporosis [Unknown]
  - Paranasal sinus discomfort [Unknown]
  - Hypomagnesaemia [Unknown]
  - Cerebrovascular accident [Unknown]
  - Nocturia [Unknown]
  - Aphasia [Unknown]
  - Visual impairment [Unknown]
  - Confusional state [Recovering/Resolving]
  - Peripheral circulatory failure [Unknown]
  - Poor peripheral circulation [Unknown]
  - Gastric infection [Recovered/Resolved]
  - Osteopenia [Unknown]
  - Hypothyroidism [Unknown]
  - Asthenia [Unknown]
  - Polyarthritis [Unknown]
  - Anaemia [Unknown]
  - Liver function test increased [Unknown]
  - Stomatitis [Unknown]
  - Memory impairment [Unknown]
  - Weight decreased [Unknown]
  - Gastroenteritis [Unknown]
  - Peripheral swelling [Unknown]
  - Essential hypertension [Unknown]
  - Dysarthria [Unknown]
  - Autoimmune hepatitis [Unknown]
  - Renal injury [Unknown]
  - Dehydration [Unknown]
  - Synovitis [Unknown]

NARRATIVE: CASE EVENT DATE: 201503
